FAERS Safety Report 7163398-X (Version None)
Quarter: 2010Q4

REPORT INFORMATION
  Report Type: 
  Country: None (occurrence: None)
  Receive Date: 20101215
  Receipt Date: 20100412
  Transmission Date: 20110411
  Serious: Yes (Other)
  Sender: FDA-Public Use
  Company Number: BR-PFIZER INC-2010045825

PATIENT
  Age: 54 Year
  Sex: Female
  Weight: 69.841 kg

DRUGS (2)
  1. LYRICA [Suspect]
     Indication: FIBROMYALGIA
     Dosage: 75 MG, EVERY 12 HOURS
     Route: 048
     Dates: start: 20100409, end: 20100409
  2. PURAN T4 [Concomitant]
     Indication: HYPOTHYROIDISM
     Dosage: UNK
     Dates: start: 20060101

REACTIONS (12)
  - ASTHMATIC CRISIS [None]
  - BLOOD PRESSURE INCREASED [None]
  - DIPLOPIA [None]
  - DRY MOUTH [None]
  - DYSPHAGIA [None]
  - EPISTAXIS [None]
  - FEELING ABNORMAL [None]
  - HYPOAESTHESIA [None]
  - INFLAMMATION [None]
  - PHARYNGEAL OEDEMA [None]
  - SOMNOLENCE [None]
  - TONSILLAR HYPERTROPHY [None]
